FAERS Safety Report 25483422 (Version 1)
Quarter: 2025Q2

REPORT INFORMATION
  Report Type: Spontaneous
  Country: US (occurrence: US)
  Receive Date: 20250626
  Receipt Date: 20250626
  Transmission Date: 20250716
  Serious: Yes (Hospitalization, Other)
  Sender: JOHNSON AND JOHNSON
  Company Number: US-JNJFOC-20250632457

PATIENT
  Age: 55 Year
  Sex: Female

DRUGS (2)
  1. CABENUVA [Suspect]
     Active Substance: CABOTEGRAVIR\RILPIVIRINE
     Indication: HIV infection
     Route: 065
     Dates: start: 20220301
  2. CABENUVA [Suspect]
     Active Substance: CABOTEGRAVIR\RILPIVIRINE
     Indication: HIV infection
     Route: 065
     Dates: start: 20220301

REACTIONS (3)
  - Hospitalisation [Recovered/Resolved]
  - Hernia repair [Unknown]
  - Gastric volvulus [Unknown]

NARRATIVE: CASE EVENT DATE: 20250501
